FAERS Safety Report 20744578 (Version 6)
Quarter: 2022Q3

REPORT INFORMATION
  Report Type: Report from Study
  Country: DE (occurrence: DE)
  Receive Date: 20220425
  Receipt Date: 20220704
  Transmission Date: 20221027
  Serious: Yes (Other)
  Sender: FDA-Public Use
  Company Number: DE-PFM-2021-08873

PATIENT

DRUGS (12)
  1. NERATINIB [Suspect]
     Active Substance: NERATINIB
     Indication: Breast cancer
     Dosage: 240 MG/ DAY
     Route: 048
     Dates: start: 20210722
  2. LEVOTHYROXINE SODIUM [Concomitant]
     Active Substance: LEVOTHYROXINE SODIUM
     Indication: Product used for unknown indication
     Dosage: 75 MG, DAILY
     Route: 048
     Dates: start: 20091231
  3. TRENANTONE [Concomitant]
     Active Substance: LEUPROLIDE ACETATE
     Indication: Product used for unknown indication
     Dosage: 11.25 MG, EVERY 3 MONTHS
     Route: 058
     Dates: start: 20200331
  4. TAMOXIFEN [Concomitant]
     Active Substance: TAMOXIFEN
     Indication: Prophylaxis
     Dosage: 20 MG, DAILY
     Route: 048
     Dates: start: 20210721, end: 202204
  5. TAMOXIFEN [Concomitant]
     Active Substance: TAMOXIFEN
     Dosage: 10 MG, DAILY
     Route: 048
     Dates: start: 202204, end: 20220523
  6. TAMOXIFEN [Concomitant]
     Active Substance: TAMOXIFEN
     Dosage: 20 MG, DAILY
     Route: 048
     Dates: start: 20220524
  7. LOPERAMIDE [Concomitant]
     Active Substance: LOPERAMIDE
     Indication: Prophylaxis against diarrhoea
     Dosage: 4 MG, PRN ( AS NEEDED)
     Route: 048
     Dates: start: 20210722, end: 20211017
  8. LOPERAMIDE [Concomitant]
     Active Substance: LOPERAMIDE
     Dosage: 2 MG, DAILY
     Route: 048
     Dates: start: 20211018, end: 20220524
  9. LOPERAMIDE [Concomitant]
     Active Substance: LOPERAMIDE
     Dosage: 10 MG, DAILY
     Route: 048
     Dates: start: 20220525, end: 20220601
  10. LOPERAMIDE [Concomitant]
     Active Substance: LOPERAMIDE
     Dosage: 2 MG, DAILY
     Route: 048
     Dates: start: 20220602
  11. Moderna-Impfung [Concomitant]
     Indication: Product used for unknown indication
     Dosage: UNK
     Route: 030
     Dates: start: 20210715, end: 20210812
  12. Booster-Impfung [Concomitant]
     Indication: Prophylaxis
     Dosage: UNK
     Route: 030
     Dates: start: 20220121, end: 20220121

REACTIONS (16)
  - Thrombocytopenia [Not Recovered/Not Resolved]
  - Skin infection [Recovered/Resolved]
  - Blood bilirubin decreased [Recovered/Resolved]
  - Gamma-glutamyltransferase increased [Recovering/Resolving]
  - Haemoglobin decreased [Recovered/Resolved]
  - Red blood cell count decreased [Recovered/Resolved]
  - Haematocrit decreased [Recovered/Resolved]
  - COVID-19 [Unknown]
  - Influenza [Recovered/Resolved]
  - Gingival bleeding [Not Recovered/Not Resolved]
  - Epistaxis [Recovering/Resolving]
  - Diarrhoea [Recovered/Resolved]
  - Vomiting [Recovered/Resolved]
  - Dizziness [Recovered/Resolved]
  - Diarrhoea [Recovered/Resolved]
  - Onychoclasis [Not Recovered/Not Resolved]

NARRATIVE: CASE EVENT DATE: 20210723
